FAERS Safety Report 17305920 (Version 1)
Quarter: 2020Q1

REPORT INFORMATION
  Report Type: Spontaneous
  Country: US (occurrence: US)
  Receive Date: 20200106
  Receipt Date: 20200106
  Transmission Date: 20200409
  Serious: Yes (Hospitalization)
  Sender: FDA-Public Use
  Company Number: None

PATIENT
  Age: 44 Year
  Sex: Male

DRUGS (8)
  1. VITAMIN B,C AND D [Concomitant]
  2. RIFAMPIN. [Concomitant]
     Active Substance: RIFAMPIN
  3. TIZANIDINE. [Concomitant]
     Active Substance: TIZANIDINE
  4. BACLOFEN. [Concomitant]
     Active Substance: BACLOFEN
  5. CEPHALEXIN. [Concomitant]
     Active Substance: CEPHALEXIN
  6. DEXILANT [Concomitant]
     Active Substance: DEXLANSOPRAZOLE
  7. DALFAMPRIDINE 10MG [Suspect]
     Active Substance: DALFAMPRIDINE
     Indication: MULTIPLE SCLEROSIS
     Dosage: ?          OTHER FREQUENCY:Q12HRS ;?
     Route: 048
     Dates: start: 20181008
  8. SLIDENAFIL [Concomitant]
     Active Substance: SILDENAFIL

REACTIONS (2)
  - Hospitalisation [None]
  - Therapy cessation [None]

NARRATIVE: CASE EVENT DATE: 20200106
